FAERS Safety Report 19550239 (Version 1)
Quarter: 2021Q3

REPORT INFORMATION
  Report Type: Spontaneous
  Country: US (occurrence: US)
  Receive Date: 20210714
  Receipt Date: 20210714
  Transmission Date: 20211014
  Serious: No
  Sender: FDA-Public Use
  Company Number: US-TARO-2021TAR00336

PATIENT

DRUGS (1)
  1. BETAMETHASONE DIPROPIONATE LOTION (AUGMENTED) USP 0.05% [Suspect]
     Active Substance: BETAMETHASONE DIPROPIONATE
     Indication: PRODUCT USED FOR UNKNOWN INDICATION
     Dosage: CONTAINER SIZE: 60ML, STORAGE CONDITIONS: ROOM TEMP
     Route: 065

REACTIONS (1)
  - Drug ineffective [Unknown]
